FAERS Safety Report 21415829 (Version 3)
Quarter: 2023Q2

REPORT INFORMATION
  Report Type: Report from Study
  Country: DE (occurrence: None)
  Receive Date: 20221006
  Receipt Date: 20230612
  Transmission Date: 20230721
  Serious: Yes (Hospitalization)
  Sender: FDA-Public Use
  Company Number: DE-ROCHE-3192919

PATIENT
  Age: 49 Year
  Sex: Female
  Weight: 86 kg

DRUGS (6)
  1. ATEZOLIZUMAB [Suspect]
     Active Substance: ATEZOLIZUMAB
     Indication: Triple negative breast cancer
     Dosage: DATE OF LAST DOSE OF ATEZOLIZUMAB PRIOR TO SAE: 24/AUG/2022
     Route: 041
     Dates: start: 20220516
  2. PACLITAXEL [Suspect]
     Active Substance: PACLITAXEL
     Indication: Triple negative breast cancer
     Dosage: DATE OF LAST DOSE OF PACLITAXEL PRIOR TO SAE: 17/AUG/2022
     Route: 042
     Dates: start: 20220601
  3. CARBOPLATIN [Suspect]
     Active Substance: CARBOPLATIN
     Indication: Triple negative breast cancer
     Dosage: DATE OF LAST DOSE OF CARBOPLATIN PRIOR TO SAE: 17/AUG/2022
     Route: 042
     Dates: start: 20220601
  4. EPIRUBICIN [Suspect]
     Active Substance: EPIRUBICIN
     Indication: Triple negative breast cancer
     Dosage: DATE OF LAST DOSE OF EPIRUBICIN PRIOR TO SAE: 24 AUG 2022
     Route: 042
     Dates: start: 20220824
  5. CYCLOPHOSPHAMIDE [Suspect]
     Active Substance: CYCLOPHOSPHAMIDE
     Indication: Triple negative breast cancer
     Dosage: DATE OF LAST DOSE OF CYCLOPHOSPHAMIDE PRIOR TO SAE: 24/AUG/2022
     Route: 042
     Dates: start: 20220824
  6. PANTOPRAZOLE SODIUM [Concomitant]
     Active Substance: PANTOPRAZOLE SODIUM
     Dates: start: 20220623

REACTIONS (1)
  - General physical health deterioration [Recovered/Resolved]

NARRATIVE: CASE EVENT DATE: 20220902
